FAERS Safety Report 8596319-3 (Version None)
Quarter: 2012Q3

REPORT INFORMATION
  Report Type: 
  Country: None (occurrence: None)
  Receive Date: 20120815
  Receipt Date: 20120815
  Transmission Date: 20120928
  Serious: Yes (Life-Threatening, Hospitalization)
  Sender: FDA-Public Use
  Company Number: CH-BAYER-2012-083003

PATIENT
  Age: 29 Year
  Sex: Female

DRUGS (7)
  1. AVELOX [Suspect]
     Dosage: UNK
     Route: 048
     Dates: start: 20120626, end: 20120627
  2. MESALAMINE [Suspect]
     Dosage: DAILY DOSE 6 DF
     Dates: start: 20120628, end: 20120710
  3. LEVOTHYROXINE SODIUM [Concomitant]
     Dosage: 125 ?G, QD
     Route: 048
  4. NOVALGIN [Suspect]
     Dosage: UNK
     Route: 048
     Dates: start: 20120707, end: 20120709
  5. AVELOX [Suspect]
     Dosage: UNK
     Dates: start: 20120703, end: 20120704
  6. MESALAMINE [Suspect]
     Indication: CROHN'S DISEASE
     Dosage: 500 MG, TID
     Route: 048
     Dates: start: 20110919
  7. CIPROFLOXACIN HCL [Suspect]
     Dosage: UNK
     Route: 048
     Dates: start: 20120707, end: 20120710

REACTIONS (2)
  - AGRANULOCYTOSIS [None]
  - SYSTEMIC INFLAMMATORY RESPONSE SYNDROME [None]
